FAERS Safety Report 22890341 (Version 2)
Quarter: 2023Q4

REPORT INFORMATION
  Report Type: Other
  Country: CA (occurrence: CA)
  Receive Date: 20230831
  Receipt Date: 20231124
  Transmission Date: 20240110
  Serious: Yes (Other)
  Sender: FDA-Public Use
  Company Number: None

PATIENT

DRUGS (8)
  1. NITRIC OXIDE [Suspect]
     Active Substance: NITRIC OXIDE
     Indication: Foetal exposure during pregnancy
     Dosage: 40 PPM
     Route: 064
  2. FENTANYL [Suspect]
     Active Substance: FENTANYL\FENTANYL CITRATE
     Indication: Foetal exposure during pregnancy
     Dosage: 250UG/HR
     Route: 064
  3. MIDAZOLAM [Suspect]
     Active Substance: MIDAZOLAM
     Indication: Foetal exposure during pregnancy
     Dosage: 10MG/HR
     Route: 064
  4. NOREPINEPHRINE [Suspect]
     Active Substance: NOREPINEPHRINE
     Indication: Foetal exposure during pregnancy
     Dosage: 0.02 UG/KG/MIN
     Route: 064
  5. PIPERACILLIN AND TAZOBACTAM [Suspect]
     Active Substance: PIPERACILLIN SODIUM\TAZOBACTAM SODIUM
     Indication: Foetal exposure during pregnancy
     Dosage: UNKNOWN
     Route: 064
  6. PROPOFOL [Suspect]
     Active Substance: PROPOFOL
     Indication: Foetal exposure during pregnancy
     Dosage: 60UG/KG/MIN
     Route: 064
  7. ROCURONIUM BROMIDE [Suspect]
     Active Substance: ROCURONIUM BROMIDE
     Indication: Foetal exposure during pregnancy
     Route: 064
  8. VASOPRESSIN [Suspect]
     Active Substance: VASOPRESSIN
     Indication: Foetal exposure during pregnancy
     Dosage: 0.04 IU/MIN
     Route: 064

REACTIONS (5)
  - Hypotonia neonatal [Unknown]
  - Neonatal asphyxia [Unknown]
  - Premature baby [Unknown]
  - Foetal exposure during pregnancy [Unknown]
  - Foetal exposure during delivery [Unknown]
